FAERS Safety Report 24448512 (Version 1)
Quarter: 2024Q4

REPORT INFORMATION
  Report Type: Report from Study
  Country: GB (occurrence: GB)
  Receive Date: 20241017
  Receipt Date: 20241017
  Transmission Date: 20250115
  Serious: Yes (Other)
  Sender: ALEXION PHARMACEUTICALS
  Company Number: GB-ALXN-202408GBR000936GB

PATIENT
  Age: 31 Year

DRUGS (8)
  1. ULTOMIRIS [Suspect]
     Active Substance: RAVULIZUMAB-CWVZ
     Indication: Paroxysmal nocturnal haemoglobinuria
     Dosage: 3600 MILLIGRAM, Q8W
  2. ULTOMIRIS [Suspect]
     Active Substance: RAVULIZUMAB-CWVZ
     Dosage: 3600 MILLIGRAM, Q8W
  3. ULTOMIRIS [Suspect]
     Active Substance: RAVULIZUMAB-CWVZ
     Dosage: 3600 MILLIGRAM, Q8W
  4. ULTOMIRIS [Suspect]
     Active Substance: RAVULIZUMAB-CWVZ
     Dosage: 3600 MILLIGRAM, Q8W
  5. ULTOMIRIS [Suspect]
     Active Substance: RAVULIZUMAB-CWVZ
     Dosage: 3800 MILLIGRAM, Q8W
  6. ULTOMIRIS [Suspect]
     Active Substance: RAVULIZUMAB-CWVZ
     Dosage: 3800 MILLIGRAM, Q8W
  7. ULTOMIRIS [Suspect]
     Active Substance: RAVULIZUMAB-CWVZ
     Dosage: 3800 MILLIGRAM, Q8W
  8. ULTOMIRIS [Suspect]
     Active Substance: RAVULIZUMAB-CWVZ
     Dosage: 3800 MILLIGRAM, Q8W

REACTIONS (2)
  - Lower respiratory tract infection [Unknown]
  - Heavy menstrual bleeding [Unknown]
